FAERS Safety Report 6031811-7 (Version None)
Quarter: 2009Q1

REPORT INFORMATION
  Report Type: 
  Country: None (occurrence: None)
  Receive Date: 20090108
  Receipt Date: 20081230
  Transmission Date: 20090719
  Serious: Yes (Other)
  Sender: FDA-Public Use
  Company Number: GB-JNJFOC-20081207023

PATIENT
  Age: 4 Year
  Sex: Male

DRUGS (18)
  1. MICONAZOLE [Suspect]
     Route: 002
  2. MICONAZOLE [Suspect]
     Indication: ORAL CANDIDIASIS
     Route: 002
  3. TACROLIMUS [Interacting]
     Indication: DRUG USE FOR UNKNOWN INDICATION
     Route: 065
  4. COTRIM [Concomitant]
  5. AMOXICILLIN [Concomitant]
  6. AMPHOTERICIN B [Concomitant]
  7. BASILIXIMAB [Concomitant]
  8. COLISTIN SULFATE [Concomitant]
  9. DIPYRIDAMOLE [Concomitant]
  10. GANCICLOVIR [Concomitant]
  11. GENTAMICIN [Concomitant]
  12. MEROPENEM TRIHYDRATE [Concomitant]
  13. METHYLPREDNISOLONE 16MG TAB [Concomitant]
  14. METRONIDAZOLE [Concomitant]
  15. NIFEDIPINE [Concomitant]
  16. NYSTATIN [Concomitant]
  17. OMEPRAZOLE [Concomitant]
  18. VANCOMYCIN HYDROCHLORIDE [Concomitant]

REACTIONS (2)
  - DRUG INTERACTION [None]
  - IMMUNOSUPPRESSANT DRUG LEVEL INCREASED [None]
